FAERS Safety Report 21257080 (Version 4)
Quarter: 2023Q1

REPORT INFORMATION
  Report Type: Report from Study
  Country: CA (occurrence: CA)
  Receive Date: 20220826
  Receipt Date: 20230320
  Transmission Date: 20230417
  Serious: Yes (Other)
  Sender: FDA-Public Use
  Company Number: CA-BAUSCH-BL-2022-020850

PATIENT
  Age: 48 Year
  Sex: Female

DRUGS (11)
  1. BRODALUMAB [Suspect]
     Active Substance: BRODALUMAB
     Indication: Psoriasis
     Dosage: 2 SINGLE USE PREFILLED SYRINGE
     Route: 058
  2. BRODALUMAB [Suspect]
     Active Substance: BRODALUMAB
     Dosage: 2 SINGLE USE PREFILLED SYRINGE
     Route: 058
  3. BRODALUMAB [Suspect]
     Active Substance: BRODALUMAB
     Dosage: 2 SINGLE USE PREFILLED SYRINGE
     Route: 058
  4. SILIQ [Suspect]
     Active Substance: BRODALUMAB
     Indication: Psoriasis
     Route: 058
  5. SILIQ [Suspect]
     Active Substance: BRODALUMAB
     Route: 058
  6. SILIQ [Suspect]
     Active Substance: BRODALUMAB
     Route: 058
  7. SILIQ [Suspect]
     Active Substance: BRODALUMAB
     Route: 058
  8. COVID-19 VACCINE NOS [Suspect]
     Active Substance: COVID-19 VACCINE NOS
     Indication: COVID-19 immunisation
     Dosage: TOTAL
     Route: 030
  9. VAXZEVRIA [Suspect]
     Active Substance: AZD-1222
     Indication: Product used for unknown indication
     Dosage: SOLUTION INTRAMUSCULAR
     Route: 065
  10. ASTRAZENECA COVID-19 VACCINE [Suspect]
     Active Substance: AZD-1222
     Indication: Product used for unknown indication
     Route: 030
  11. VITAMINS NOS [Concomitant]
     Active Substance: VITAMINS
     Indication: Product used for unknown indication

REACTIONS (8)
  - Blood pressure increased [Recovered/Resolved]
  - Musculoskeletal stiffness [Recovered/Resolved]
  - Pain in extremity [Recovered/Resolved]
  - Psoriatic arthropathy [Recovered/Resolved]
  - Ill-defined disorder [Recovered/Resolved]
  - Arthralgia [Recovered/Resolved]
  - Inappropriate schedule of product administration [Recovered/Resolved]
  - Treatment noncompliance [Recovered/Resolved]
